FAERS Safety Report 4744446-0 (Version None)
Quarter: 2005Q3

REPORT INFORMATION
  Report Type: 
  Country: None (occurrence: None)
  Receive Date: 20050809
  Receipt Date: 20050802
  Transmission Date: 20060218
  Serious: Yes (Hospitalization, Other)
  Sender: FDA-Public Use
  Company Number: 2005110375

PATIENT
  Age: 80 Year
  Sex: Female
  Weight: 61.2356 kg

DRUGS (6)
  1. CELEBREX [Suspect]
     Indication: EXOSTOSIS
     Dosage: (200 MG, AS NECESSARY),
  2. CELEBREX [Suspect]
     Indication: MUSCULOSKELETAL DISCOMFORT
     Dosage: (200 MG, AS NECESSARY),
  3. CELEBREX [Suspect]
     Indication: PAIN IN EXTREMITY
     Dosage: (200 MG, AS NECESSARY),
  4. LOTREL [Concomitant]
  5. ZOCOR [Concomitant]
  6. FOSAMAX [Concomitant]

REACTIONS (1)
  - GASTROOESOPHAGEAL REFLUX DISEASE [None]
